FAERS Safety Report 16932179 (Version 1)
Quarter: 2019Q4

REPORT INFORMATION
  Report Type: Spontaneous
  Country: PT (occurrence: PT)
  Receive Date: 20191017
  Receipt Date: 20191017
  Transmission Date: 20200122
  Serious: Yes (Death, Hospitalization, Other)
  Sender: FDA-Public Use
  Company Number: PT-ALLERGAN-1941965US

PATIENT
  Sex: Male

DRUGS (2)
  1. TRIPTORELIN PAMOATE UNK [Suspect]
     Active Substance: TRIPTORELIN PAMOATE
     Indication: ANTIANDROGEN THERAPY
     Dosage: UNK
     Route: 065
  2. BICALUTAMIDE. [Suspect]
     Active Substance: BICALUTAMIDE
     Indication: ANTIANDROGEN THERAPY
     Route: 065

REACTIONS (8)
  - Metastases to lung [Unknown]
  - Anaemia [Unknown]
  - Hydronephrosis [Unknown]
  - Death [Fatal]
  - Ureteric rupture [Unknown]
  - Acute kidney injury [Unknown]
  - Prostate cancer [Unknown]
  - Respiratory failure [Unknown]
